FAERS Safety Report 4305979-4 (Version None)
Quarter: 2004Q1

REPORT INFORMATION
  Report Type: 
  Country: None (occurrence: None)
  Receive Date: 20040225
  Receipt Date: 20030213
  Transmission Date: 20041129
  Serious: Yes (Other)
  Sender: FDA-Public Use
  Company Number: 2003IC000060

PATIENT
  Age: 82 Year
  Sex: Male

DRUGS (1)
  1. EFUDEX [Suspect]
     Indication: ACTINIC KERATOSIS
     Dosage: TOPICAL
     Route: 061

REACTIONS (3)
  - ERYTHEMA [None]
  - NEUROPATHY PERIPHERAL [None]
  - SKIN INFLAMMATION [None]
